FAERS Safety Report 18397003 (Version 3)
Quarter: 2020Q4

REPORT INFORMATION
  Report Type: Spontaneous
  Country: US (occurrence: US)
  Receive Date: 20201019
  Receipt Date: 20201113
  Transmission Date: 20210114
  Serious: Yes (Hospitalization)
  Sender: FDA-Public Use
  Company Number: US-CELGENEUS-USA-20201004128

PATIENT
  Age: 72 Year
  Sex: Male

DRUGS (1)
  1. REVLIMID [Suspect]
     Active Substance: LENALIDOMIDE
     Indication: PLASMA CELL MYELOMA
     Dosage: 25 MILLIGRAM
     Route: 048
     Dates: start: 20200925

REACTIONS (11)
  - Chest discomfort [Unknown]
  - Hiccups [Unknown]
  - Paraesthesia [Unknown]
  - Throat tightness [Unknown]
  - Irritability [Unknown]
  - Hypoaesthesia [Unknown]
  - Pyrexia [Unknown]
  - Rash macular [Unknown]
  - Chills [Unknown]
  - Headache [Unknown]
  - Pruritus [Unknown]

NARRATIVE: CASE EVENT DATE: 2020
